FAERS Safety Report 8932949 (Version 6)
Quarter: 2013Q3

REPORT INFORMATION
  Report Type: Report from Study
  Country: DE (occurrence: DE)
  Receive Date: 20121128
  Receipt Date: 20130807
  Transmission Date: 20140515
  Serious: Yes (Hospitalization, Other)
  Sender: FDA-Public Use
  Company Number: DE-ROCHE-1160479

PATIENT
  Age: 40 Year
  Sex: Male
  Weight: 90 kg

DRUGS (2)
  1. VEMURAFENIB [Suspect]
     Indication: METASTATIC MALIGNANT MELANOMA
     Dosage: MOST RECENT DOSE ON 04/NOV/2012
     Route: 048
     Dates: start: 20111122
  2. ASS [Concomitant]
     Indication: HEADACHE
     Route: 048
     Dates: start: 20111216

REACTIONS (2)
  - Dermal cyst [Recovered/Resolved]
  - Keratoacanthoma [Not Recovered/Not Resolved]
